FAERS Safety Report 23482555 (Version 2)
Quarter: 2024Q2

REPORT INFORMATION
  Report Type: Report from Study
  Country: CA (occurrence: CA)
  Receive Date: 20240205
  Receipt Date: 20240628
  Transmission Date: 20240715
  Serious: Yes (Death)
  Sender: FDA-Public Use
  Company Number: CA-DRL-USA-CLI/CAN/24/0001985

PATIENT
  Age: 62 Year
  Sex: Female

DRUGS (1)
  1. AZACITIDINE [Suspect]
     Active Substance: AZACITIDINE
     Indication: Acute myeloid leukaemia
     Dosage: 100MG/VIAL, 75MG/M^2 DAILY FOR 7 DAY EVERY 28 DAY
     Route: 065

REACTIONS (1)
  - Death [Fatal]
